FAERS Safety Report 18010603 (Version 7)
Quarter: 2020Q3

REPORT INFORMATION
  Report Type: Spontaneous
  Country: US (occurrence: US)
  Receive Date: 20200710
  Receipt Date: 20200901
  Transmission Date: 20201103
  Serious: No
  Sender: FDA-Public Use
  Company Number: US-PFIZER INC-2020200022

PATIENT
  Age: 65 Year
  Sex: Female
  Weight: 83.01 kg

DRUGS (5)
  1. IBRANCE [Suspect]
     Active Substance: PALBOCICLIB
     Dosage: 125 MG, CYCLIC (ONE PER DAY FOR 21 DAYS OFF FOR 7)
     Route: 048
  2. IBRANCE [Suspect]
     Active Substance: PALBOCICLIB
     Dosage: 125 MG, CYCLIC (ONE PER DAY FOR 21 DAYS OFF FOR 7)
     Route: 048
  3. IBRANCE [Suspect]
     Active Substance: PALBOCICLIB
     Dosage: 125 MG, CYCLIC (ONE PER DAY FOR 21 DAYS OFF FOR 7)
     Route: 048
     Dates: start: 20200706
  4. IBRANCE [Suspect]
     Active Substance: PALBOCICLIB
     Dosage: 125 MG, CYCLIC (ONE PER DAY FOR 21 DAYS OFF FOR 7)
     Route: 048
  5. IBRANCE [Suspect]
     Active Substance: PALBOCICLIB
     Indication: BREAST CANCER METASTATIC
     Dosage: 125 MG, CYCLIC (ONE PER DAY FOR 21 DAYS OFF FOR 7)
     Route: 048
     Dates: start: 201708

REACTIONS (7)
  - Poor quality product administered [Unknown]
  - Feeling abnormal [Unknown]
  - Product taste abnormal [Unknown]
  - Nausea [Unknown]
  - Product coating issue [Unknown]
  - Product dose omission issue [Unknown]
  - Product odour abnormal [Unknown]

NARRATIVE: CASE EVENT DATE: 20200518
